FAERS Safety Report 8451522-8 (Version None)
Quarter: 2012Q2

REPORT INFORMATION
  Report Type: 
  Country: None (occurrence: None)
  Receive Date: 20120620
  Receipt Date: 20120329
  Transmission Date: 20120825
  Serious: No
  Sender: FDA-Public Use
  Company Number: US-VERTEX PHARMACEUTICALS INC.-AE-2012-003227

PATIENT
  Sex: Male
  Weight: 69.916 kg

DRUGS (9)
  1. REYATAZ [Concomitant]
     Indication: HIV INFECTION
  2. ATROPINE [Concomitant]
  3. BUPROPION HCL [Concomitant]
     Indication: DEPRESSION
     Route: 048
  4. INCIVEK [Suspect]
     Indication: HEPATITIS C
     Route: 048
     Dates: start: 20120224
  5. TRUVADA [Concomitant]
     Indication: HIV INFECTION
  6. NORVIR [Concomitant]
     Indication: HIV INFECTION
  7. PEGASYS [Concomitant]
     Indication: HEPATITIS C
     Route: 058
     Dates: start: 20120105
  8. RIBAVIRIN [Concomitant]
     Indication: HEPATITIS C
     Route: 048
     Dates: start: 20120105
  9. LYRICA [Concomitant]
     Indication: NEUROPATHY PERIPHERAL
     Route: 048

REACTIONS (7)
  - CHEST PAIN [None]
  - LOWER RESPIRATORY TRACT INFECTION [None]
  - PRODUCTIVE COUGH [None]
  - IRRITABILITY [None]
  - HEADACHE [None]
  - OROPHARYNGEAL PAIN [None]
  - PYREXIA [None]
